FAERS Safety Report 15618517 (Version 2)
Quarter: 2019Q1

REPORT INFORMATION
  Report Type: Report from Study
  Country: PL (occurrence: PL)
  Receive Date: 20181114
  Receipt Date: 20190124
  Transmission Date: 20190417
  Serious: Yes (Other)
  Sender: FDA-Public Use
  Company Number: PL-CHIESI USA, INC.-PL-2018CHI000495

PATIENT
  Age: 0 Day
  Sex: Female
  Weight: 1.53 kg

DRUGS (4)
  1. CUROSURF [Suspect]
     Active Substance: PORACTANT ALFA
     Indication: NEONATAL RESPIRATORY DISTRESS SYNDROME
     Dosage: 3.6 ML, SINGLE
     Route: 039
     Dates: start: 20181027, end: 20181027
  2. CAFFEINE CITRATE. [Concomitant]
     Active Substance: CAFFEINE CITRATE
     Indication: PRODUCT USED FOR UNKNOWN INDICATION
     Dosage: 30 MG, (FIRST DOSE)
     Dates: start: 20181027
  3. CAFFEINE CITRATE. [Concomitant]
     Active Substance: CAFFEINE CITRATE
     Dosage: 7 MG, (SUPPORTING DOSE)
  4. KETAMINE [Concomitant]
     Active Substance: KETAMINE
     Indication: PREMEDICATION
     Dosage: 1 MG, SINGLE
     Dates: start: 20181027, end: 20181027

REACTIONS (2)
  - Product administration error [Recovered/Resolved]
  - Neonatal hypoxia [Recovered/Resolved]

NARRATIVE: CASE EVENT DATE: 20181027
